FAERS Safety Report 4889736-6 (Version None)
Quarter: 2006Q1

REPORT INFORMATION
  Report Type: 
  Country: None (occurrence: None)
  Receive Date: 20060124
  Receipt Date: 20050421
  Transmission Date: 20060701
  Serious: Yes (Hospitalization, Disabling, Other)
  Sender: FDA-Public Use
  Company Number: US-MERCK-0504USA04285

PATIENT
  Age: 62 Year
  Sex: Female
  Weight: 52 kg

DRUGS (10)
  1. VIOXX [Suspect]
     Indication: ARTHRITIS
     Route: 048
     Dates: start: 20000101, end: 20040101
  2. QUININE [Concomitant]
     Indication: MUSCLE SPASMS
     Route: 065
  3. METHOTREXATE [Concomitant]
     Indication: VASCULITIS CEREBRAL
     Route: 065
  4. FOLIC ACID [Concomitant]
     Indication: VASCULITIS CEREBRAL
     Route: 065
  5. ZANTAC [Concomitant]
     Route: 065
  6. FOSAMAX [Concomitant]
     Indication: OSTEOPOROSIS
     Route: 065
  7. FORTEO [Concomitant]
     Indication: BONE DISORDER
     Route: 065
  8. CALCIUM (UNSPECIFIED) [Concomitant]
     Route: 065
  9. TYLENOL (CAPLET) [Concomitant]
     Route: 065
  10. ROLAIDS [Concomitant]
     Route: 065

REACTIONS (19)
  - ANGIOPATHY [None]
  - AORTIC RUPTURE [None]
  - AORTIC VALVE STENOSIS [None]
  - ARTERIOSCLEROSIS CORONARY ARTERY [None]
  - BLOOD CHOLESTEROL INCREASED [None]
  - CARDIAC FAILURE [None]
  - CHEST PAIN [None]
  - CORONARY ARTERY DISEASE [None]
  - CORONARY ARTERY STENOSIS [None]
  - DIASTOLIC DYSFUNCTION [None]
  - HYPERHIDROSIS [None]
  - INTERMITTENT CLAUDICATION [None]
  - INTRACARDIAC THROMBUS [None]
  - MUSCLE SPASMS [None]
  - MYOCARDIAL INFARCTION [None]
  - NAUSEA [None]
  - PERIPHERAL VASCULAR DISORDER [None]
  - PYREXIA [None]
  - VENTRICULAR HYPERTROPHY [None]
